FAERS Safety Report 7416395-0 (Version None)
Quarter: 2011Q2

REPORT INFORMATION
  Report Type: 
  Country: None (occurrence: None)
  Receive Date: 20110414
  Receipt Date: 20110405
  Transmission Date: 20111010
  Serious: Yes (Other)
  Sender: FDA-Public Use
  Company Number: US-ASTRAZENECA-2011SE19295

PATIENT
  Age: 73 Year
  Sex: Female

DRUGS (2)
  1. COMBIVENT [Suspect]
     Route: 065
  2. SYMBICORT [Suspect]
     Route: 055

REACTIONS (3)
  - BREAST CANCER [None]
  - OXYGEN SUPPLEMENTATION [None]
  - TYPE 2 DIABETES MELLITUS [None]
